FAERS Safety Report 10082649 (Version 2)
Quarter: 2014Q2

REPORT INFORMATION
  Report Type: Spontaneous
  Country: US (occurrence: US)
  Receive Date: 20140416
  Receipt Date: 20140509
  Transmission Date: 20141212
  Serious: No
  Sender: FDA-Public Use
  Company Number: US-B.I. PHARMACEUTICALS,INC./RIDGEFIELD-2014-BI-15489BP

PATIENT
  Sex: Male
  Weight: 86.81 kg

DRUGS (4)
  1. MICARDIS HCT [Suspect]
     Indication: HYPERTENSION
     Dosage: DOSE PER APPLICATION: 80 MG / 12.5 MG; DAILY DOSE: 80 MG/12.5 MG
     Route: 048
     Dates: start: 2012
  2. DOXAZOSIN [Concomitant]
     Indication: HYPERTENSION
     Dosage: 8 MG
     Route: 048
  3. SIMVASTATIN [Concomitant]
     Indication: BLOOD CHOLESTEROL INCREASED
     Dosage: 20 MG
     Route: 048
  4. ASPIRIN [Concomitant]
     Dosage: 81 MG
     Route: 048

REACTIONS (4)
  - Peripheral swelling [Not Recovered/Not Resolved]
  - Weight decreased [Recovered/Resolved]
  - Weight increased [Not Recovered/Not Resolved]
  - Product quality issue [Not Recovered/Not Resolved]
